FAERS Safety Report 24578975 (Version 3)
Quarter: 2024Q4

REPORT INFORMATION
  Report Type: Spontaneous
  Country: US (occurrence: US)
  Receive Date: 20241105
  Receipt Date: 20241227
  Transmission Date: 20250115
  Serious: No
  Sender: INVENTIA HEALTHCARE LTD
  Company Number: US-IHL-000619

PATIENT
  Sex: Male

DRUGS (1)
  1. TELMISARTAN [Suspect]
     Active Substance: TELMISARTAN
     Indication: Product used for unknown indication
     Route: 065

REACTIONS (5)
  - Blood pressure systolic increased [Unknown]
  - Blood pressure diastolic increased [Unknown]
  - Product quality issue [Unknown]
  - Drug ineffective [Unknown]
  - Product substitution issue [Unknown]
